FAERS Safety Report 19748221 (Version 1)
Quarter: 2021Q3

REPORT INFORMATION
  Report Type: Spontaneous
  Country: DE (occurrence: DE)
  Receive Date: 20210826
  Receipt Date: 20210826
  Transmission Date: 20211014
  Serious: Yes (Hospitalization)
  Sender: FDA-Public Use
  Company Number: NVSC2021DE186600

PATIENT
  Age: 63 Year
  Sex: Female

DRUGS (34)
  1. PACLITAXEL. [Suspect]
     Active Substance: PACLITAXEL
     Indication: OVARIAN CANCER
     Dosage: 301 MG, TIW
     Route: 042
     Dates: start: 20210309, end: 20210309
  2. PACLITAXEL. [Suspect]
     Active Substance: PACLITAXEL
     Dosage: 303 MG, TIW
     Route: 042
     Dates: start: 20210331, end: 20210331
  3. PACLITAXEL. [Suspect]
     Active Substance: PACLITAXEL
     Dosage: 303 MG, TIW
     Route: 042
     Dates: start: 20210423, end: 20210423
  4. DIMETINDENE MALEATE [Concomitant]
     Active Substance: DIMETHINDENE MALEATE
     Indication: CHEMOTHERAPY SIDE EFFECT PROPHYLAXIS
     Dosage: 4 MG,QD
     Route: 042
     Dates: start: 20210309
  5. BEVACIZUMAB. [Concomitant]
     Active Substance: BEVACIZUMAB
     Indication: OVARIAN CANCER
     Dosage: 1110 MG, TIW
     Route: 042
     Dates: start: 20210728, end: 20210728
  6. BEVACIZUMAB. [Concomitant]
     Active Substance: BEVACIZUMAB
     Dosage: 1080 MG, TIW
     Route: 042
     Dates: start: 20210422, end: 20210422
  7. PACLITAXEL. [Suspect]
     Active Substance: PACLITAXEL
     Dosage: 306 MG, TIW
     Route: 042
     Dates: start: 20210708
  8. CARBOPLATIN. [Suspect]
     Active Substance: CARBOPLATIN
     Dosage: 551 MG, TIW
     Route: 042
     Dates: start: 20210512, end: 20210512
  9. OLAPARIB. [Suspect]
     Active Substance: OLAPARIB
     Indication: OVARIAN CANCER
     Dosage: 300 MG, Q12H
     Route: 048
     Dates: start: 20210728
  10. EFEROX [Concomitant]
     Active Substance: LEVOTHYROXINE SODIUM
     Indication: SURGERY
     Dosage: 88 UG,QD
     Route: 048
     Dates: start: 19940101
  11. CARBOPLATIN. [Suspect]
     Active Substance: CARBOPLATIN
     Indication: OVARIAN CANCER
     Dosage: 490 MG, TIW
     Route: 042
     Dates: start: 20210309, end: 20210309
  12. CARBOPLATIN. [Suspect]
     Active Substance: CARBOPLATIN
     Dosage: 551 MG, TIW
     Route: 042
     Dates: start: 20210423, end: 20210423
  13. CARBOPLATIN. [Suspect]
     Active Substance: CARBOPLATIN
     Dosage: 517 MG, TIW
     Route: 042
     Dates: start: 20210617, end: 20210617
  14. DURVALUMAB. [Suspect]
     Active Substance: DURVALUMAB
     Dosage: 22 ML, TIW
     Route: 042
     Dates: start: 20210422, end: 20210422
  15. DURVALUMAB. [Suspect]
     Active Substance: DURVALUMAB
     Dosage: 23 ML, TIW
     Route: 042
     Dates: start: 20210616, end: 20210616
  16. DURVALUMAB. [Suspect]
     Active Substance: DURVALUMAB
     Dosage: 23 ML, TIW
     Route: 042
     Dates: start: 20210728
  17. BEVACIZUMAB. [Concomitant]
     Active Substance: BEVACIZUMAB
     Dosage: 1080 MG, TIW
     Route: 042
     Dates: start: 20210707, end: 20210707
  18. CARBOPLATIN. [Suspect]
     Active Substance: CARBOPLATIN
     Dosage: 506 MG, TIW
     Route: 042
     Dates: start: 20210331, end: 20210331
  19. CARBOPLATIN. [Suspect]
     Active Substance: CARBOPLATIN
     Dosage: 474 MG, TIW
     Route: 042
     Dates: start: 20210708
  20. DURVALUMAB. [Suspect]
     Active Substance: DURVALUMAB
     Dosage: 23 ML, TIW
     Route: 042
     Dates: start: 20210707, end: 20210707
  21. GRANISETRON [Concomitant]
     Active Substance: GRANISETRON
     Indication: CHEMOTHERAPY SIDE EFFECT PROPHYLAXIS
     Dosage: 1 MG,QD
     Route: 042
     Dates: start: 20210309
  22. FAMOTIDIN [Concomitant]
     Active Substance: FAMOTIDINE
     Indication: CHEMOTHERAPY SIDE EFFECT PROPHYLAXIS
     Dosage: 20 MG,QD
     Route: 048
     Dates: start: 20210309
  23. PACLITAXEL. [Suspect]
     Active Substance: PACLITAXEL
     Dosage: 303 MG, TIW
     Route: 042
     Dates: start: 20210512, end: 20210512
  24. PACLITAXEL. [Suspect]
     Active Substance: PACLITAXEL
     Dosage: 303 MG, TIW
     Route: 042
     Dates: start: 20210617, end: 20210617
  25. DURVALUMAB. [Suspect]
     Active Substance: DURVALUMAB
     Dosage: 23 ML, TIW
     Route: 042
     Dates: start: 20210511, end: 20210511
  26. DOLORMIN [Concomitant]
     Active Substance: IBUPROFEN
     Indication: HEADACHE
     Dosage: 684 MG,QD
     Route: 048
     Dates: start: 20210422
  27. APREPITANT. [Concomitant]
     Active Substance: APREPITANT
     Indication: CHEMOTHERAPY SIDE EFFECT PROPHYLAXIS
     Dosage: 125 MG,QD
     Route: 048
     Dates: start: 20210309
  28. BEVACIZUMAB. [Concomitant]
     Active Substance: BEVACIZUMAB
     Dosage: 1080 MG, TIW
     Route: 042
     Dates: start: 20210512, end: 20210512
  29. DEXAMETHASON [Concomitant]
     Active Substance: DEXAMETHASONE
     Indication: CHEMOTHERAPY SIDE EFFECT PROPHYLAXIS
     Dosage: 20 MG,QD
     Route: 042
     Dates: start: 20210309
  30. MOVICOL [Concomitant]
     Active Substance: POLYETHYLENE GLYCOL 3350\POTASSIUM CHLORIDE\SODIUM BICARBONATE\SODIUM CHLORIDE
     Indication: CONSTIPATION
     Dosage: UNK
     Route: 048
     Dates: start: 20210511
  31. BEVACIZUMAB. [Concomitant]
     Active Substance: BEVACIZUMAB
     Dosage: 1080 MG, TIW
     Route: 042
     Dates: start: 20210330, end: 20210330
  32. DURVALUMAB. [Suspect]
     Active Substance: DURVALUMAB
     Indication: OVARIAN CANCER
     Dosage: 23 ML, TIW
     Route: 042
     Dates: start: 20210330, end: 20210330
  33. BEVACIZUMAB. [Concomitant]
     Active Substance: BEVACIZUMAB
     Dosage: 1080 MG, TIW
     Route: 042
     Dates: start: 20210616, end: 20210616
  34. DEXAMETHASON [Concomitant]
     Active Substance: DEXAMETHASONE
     Indication: INFUSION RELATED REACTION

REACTIONS (1)
  - Arthralgia [Recovered/Resolved]

NARRATIVE: CASE EVENT DATE: 20210517
